FAERS Safety Report 4557604-5 (Version None)
Quarter: 2005Q1

REPORT INFORMATION
  Report Type: 
  Country: None (occurrence: None)
  Receive Date: 20050120
  Receipt Date: 20041103
  Transmission Date: 20050727
  Serious: Yes (Death, Hospitalization)
  Sender: FDA-Public Use
  Company Number: US-MERCK-0411USA00654

PATIENT
  Age: 69 Year
  Sex: Male
  Weight: 62 kg

DRUGS (4)
  1. VIOXX [Suspect]
     Indication: ARTHRITIS
     Route: 048
     Dates: start: 19990101, end: 20040101
  2. TOPROL-XL [Concomitant]
     Route: 065
  3. CLONIDINE [Concomitant]
     Route: 065
  4. [THERAPY UNSPECIFIED] [Concomitant]
     Route: 065

REACTIONS (20)
  - ABDOMINAL PAIN UPPER [None]
  - ANAL HAEMORRHAGE [None]
  - ANXIETY [None]
  - CEREBROVASCULAR ACCIDENT [None]
  - CORONARY ARTERY DISEASE [None]
  - DECREASED APPETITE [None]
  - DIARRHOEA [None]
  - DYSPEPSIA [None]
  - FALL [None]
  - FATIGUE [None]
  - HIP FRACTURE [None]
  - HYPERLIPIDAEMIA [None]
  - HYPERTENSION [None]
  - INTESTINAL HAEMORRHAGE [None]
  - LACUNAR INFARCTION [None]
  - MYOCARDIAL INFARCTION [None]
  - RASH [None]
  - RENAL BRUIT [None]
  - SINUS DISORDER [None]
  - URINARY RETENTION [None]
